FAERS Safety Report 13477926 (Version 1)
Quarter: 2017Q2

REPORT INFORMATION
  Report Type: Spontaneous
  Country: US (occurrence: US)
  Receive Date: 20170425
  Receipt Date: 20170425
  Transmission Date: 20170830
  Serious: No
  Sender: FDA-Public Use
  Company Number: None

PATIENT
  Age: 63 Year
  Sex: Female
  Weight: 65.25 kg

DRUGS (4)
  1. ULTRA-D [Concomitant]
  2. JUBLIA [Suspect]
     Active Substance: EFINACONAZOLE
     Indication: ONYCHOMYCOSIS
     Dosage: ?          QUANTITY:1 1;?
     Route: 061
     Dates: start: 20161228, end: 20170425
  3. TURMERIC [Concomitant]
     Active Substance: HERBALS\TURMERIC
  4. EMULSIFIED VITAMIN D WITH COD LIVER OIL [Concomitant]

REACTIONS (8)
  - Product substitution issue [None]
  - Sinusitis [None]
  - Contusion [None]
  - Skin mass [None]
  - Oropharyngeal pain [None]
  - Multiple allergies [None]
  - Conjunctivitis [None]
  - Skin discolouration [None]

NARRATIVE: CASE EVENT DATE: 20170404
